FAERS Safety Report 6840283-1 (Version None)
Quarter: 2010Q2

REPORT INFORMATION
  Report Type: 
  Country: None (occurrence: None)
  Receive Date: 20100629
  Receipt Date: 20100420
  Transmission Date: 20101027
  Serious: No
  Sender: FDA-Public Use
  Company Number: US-WYE-H14773310

PATIENT
  Age: 70 Year
  Sex: Female
  Weight: 65.38 kg

DRUGS (3)
  1. PRISTIQ [Suspect]
     Indication: DEPRESSION
     Dosage: 50 MG 1X PER 1 DAY ORAL
     Route: 048
     Dates: start: 20100419
  2. XANAX [Suspect]
     Dosage: .5 MG AS NEEDED, UNKNOWN
     Dates: start: 20100419
  3. INDERAL [Concomitant]

REACTIONS (3)
  - MALAISE [None]
  - NAUSEA [None]
  - VOMITING [None]
